FAERS Safety Report 9339308 (Version 1)
Quarter: 2013Q2

REPORT INFORMATION
  Report Type: Spontaneous
  Country: FI (occurrence: FI)
  Receive Date: 20130610
  Receipt Date: 20130610
  Transmission Date: 20140414
  Serious: Yes (Life-Threatening, Hospitalization, Other)
  Sender: FDA-Public Use
  Company Number: PHHY2013FI057962

PATIENT
  Age: 50 Year
  Sex: Male

DRUGS (9)
  1. LEPONEX [Suspect]
     Indication: SCHIZOPHRENIA
     Dosage: 225 MG, DAILY
     Route: 048
     Dates: start: 20130212, end: 20130416
  2. DIFORMIN [Concomitant]
     Indication: DIABETES MELLITUS
     Dosage: UNK
     Route: 048
  3. KALEORID [Concomitant]
     Dosage: UNK
     Route: 048
  4. KARDOPAL [Concomitant]
     Indication: PARKINSON^S DISEASE
     Dosage: UNK
     Route: 048
  5. LIPCUT [Concomitant]
     Dosage: UNK
     Route: 048
  6. OMEPRAZOL RATIOPHARM [Concomitant]
     Dosage: UNK
     Route: 048
  7. SIFROL [Concomitant]
     Indication: PARKINSON^S DISEASE
     Dosage: UNK
     Route: 048
  8. STALEVO [Concomitant]
     Indication: PARKINSON^S DISEASE
     Dosage: UNK
     Route: 048
  9. TRIMOPAN [Concomitant]
     Dosage: UNK
     Route: 048

REACTIONS (8)
  - Agranulocytosis [Recovered/Resolved]
  - Neutropenia [Recovered/Resolved]
  - White blood cell count decreased [Recovered/Resolved]
  - Bacterial infection [Recovered/Resolved]
  - Pyrexia [Recovered/Resolved]
  - Mouth breathing [Recovered/Resolved]
  - Oxygen saturation abnormal [Recovered/Resolved]
  - Hypotension [Recovered/Resolved]
